FAERS Safety Report 15884467 (Version 1)
Quarter: 2019Q1

REPORT INFORMATION
  Report Type: Spontaneous
  Country: US (occurrence: US)
  Receive Date: 20190129
  Receipt Date: 20190129
  Transmission Date: 20190417
  Serious: No
  Sender: FDA-Public Use
  Company Number: US-LANNETT COMPANY, INC.-US-2018LAN000887

PATIENT

DRUGS (4)
  1. BACLOFEN (20MG) [Suspect]
     Active Substance: BACLOFEN
     Dosage: 5 MG, QID
     Dates: start: 20180722
  2. GABAPENTIN. [Concomitant]
     Active Substance: GABAPENTIN
     Indication: PRODUCT USED FOR UNKNOWN INDICATION
     Dosage: UNK
  3. BACLOFEN (20MG) [Suspect]
     Active Substance: BACLOFEN
     Indication: WITHDRAWAL SYNDROME
     Dosage: 20 MG, QID
     Route: 048
     Dates: start: 20180713, end: 20180716
  4. BACLOFEN (20MG) [Suspect]
     Active Substance: BACLOFEN
     Dosage: 10 MG, QID
     Dates: start: 20180717, end: 20180721

REACTIONS (5)
  - Frequent bowel movements [Unknown]
  - Headache [Unknown]
  - Burning sensation [Unknown]
  - Rectal haemorrhage [Unknown]
  - Indifference [Unknown]

NARRATIVE: CASE EVENT DATE: 20180713
